FAERS Safety Report 24865931 (Version 1)
Quarter: 2025Q1

REPORT INFORMATION
  Report Type: Spontaneous
  Country: US (occurrence: US)
  Receive Date: 20250121
  Receipt Date: 20250121
  Transmission Date: 20250409
  Serious: Yes (Other)
  Sender: DR REDDYS
  Company Number: US-DRL-USA-USA/2025/01/000793

PATIENT
  Age: 47 Year
  Sex: Male

DRUGS (8)
  1. NORTRIPTYLINE [Suspect]
     Active Substance: NORTRIPTYLINE
     Indication: Irritable bowel syndrome
  2. NORTRIPTYLINE [Suspect]
     Active Substance: NORTRIPTYLINE
     Indication: Constipation
  3. DULOXETINE [Concomitant]
     Active Substance: DULOXETINE
     Indication: Irritable bowel syndrome
  4. DULOXETINE [Concomitant]
     Active Substance: DULOXETINE
     Indication: Constipation
  5. GABAPENTIN [Concomitant]
     Active Substance: GABAPENTIN
     Indication: Irritable bowel syndrome
  6. GABAPENTIN [Concomitant]
     Active Substance: GABAPENTIN
     Indication: Constipation
  7. TENAPANOR [Concomitant]
     Active Substance: TENAPANOR
     Indication: Irritable bowel syndrome
  8. TENAPANOR [Concomitant]
     Active Substance: TENAPANOR
     Indication: Constipation

REACTIONS (1)
  - Drug ineffective for unapproved indication [Unknown]
